FAERS Safety Report 4652077-6 (Version None)
Quarter: 2005Q2

REPORT INFORMATION
  Report Type: 
  Country: None (occurrence: None)
  Receive Date: 20050502
  Receipt Date: 20050420
  Transmission Date: 20051028
  Serious: Yes (Other)
  Sender: FDA-Public Use
  Company Number: 200511663BCC

PATIENT
  Age: 72 Year
  Sex: Male
  Weight: 104.3273 kg

DRUGS (2)
  1. ALEVE [Suspect]
     Indication: PAIN
     Dosage: 440 MG, ONCE, ORAL
     Route: 048
     Dates: start: 20050419
  2. COUMADIN [Concomitant]

REACTIONS (2)
  - CONDITION AGGRAVATED [None]
  - HAEMOPTYSIS [None]
